FAERS Safety Report 15749100 (Version 1)
Quarter: 2018Q4

REPORT INFORMATION
  Report Type: Spontaneous
  Country: JP (occurrence: JP)
  Receive Date: 20181221
  Receipt Date: 20181221
  Transmission Date: 20190205
  Serious: Yes (Hospitalization, Other)
  Sender: FDA-Public Use
  Company Number: JP-SUN PHARMACEUTICAL INDUSTRIES LTD-2018RR-194273

PATIENT
  Age: 6 Year
  Sex: Male

DRUGS (2)
  1. SULPHAMETHOXAZOLE + TRIMETHOPRIM [Suspect]
     Active Substance: SULFAMETHOXAZOLE\TRIMETHOPRIM
     Indication: OSTEOMYELITIS
     Dosage: UNK
     Route: 065
  2. PREDNISOLONE. [Suspect]
     Active Substance: PREDNISOLONE
     Indication: DRUG REACTION WITH EOSINOPHILIA AND SYSTEMIC SYMPTOMS
     Dosage: 30 MILLIGRAM, DAILY
     Route: 048

REACTIONS (8)
  - Vogt-Koyanagi-Harada syndrome [Unknown]
  - Drug reaction with eosinophilia and systemic symptoms [Unknown]
  - Vitiligo [Unknown]
  - Uveitis [Unknown]
  - Type 1 diabetes mellitus [Unknown]
  - Alopecia [Unknown]
  - Autoimmune thyroiditis [Unknown]
  - Polyglandular autoimmune syndrome type III [Unknown]
